FAERS Safety Report 5296669-2 (Version None)
Quarter: 2007Q2

REPORT INFORMATION
  Report Type: 
  Country: None (occurrence: None)
  Receive Date: 20070413
  Receipt Date: 20070405
  Transmission Date: 20071010
  Serious: Yes (Disabling, Other)
  Sender: FDA-Public Use
  Company Number: GB-ABBOTT-07P-167-0364208-00

PATIENT
  Age: 48 Year
  Sex: Female

DRUGS (3)
  1. DEPAKOTE [Suspect]
     Indication: DEPRESSED MOOD
     Route: 048
     Dates: start: 20060501, end: 20070201
  2. QUETIAPINE FUMARATE [Suspect]
     Indication: PSYCHOTIC DISORDER
     Route: 048
     Dates: start: 20061101
  3. VENLAFAXINE HYDROCHLORIDE [Concomitant]
     Indication: DEPRESSION
     Route: 048
     Dates: start: 20040601, end: 20070201

REACTIONS (5)
  - BLOOD CHOLESTEROL INCREASED [None]
  - BLOOD PROLACTIN INCREASED [None]
  - BLOOD TRIGLYCERIDES INCREASED [None]
  - MOOD ALTERED [None]
  - WEIGHT INCREASED [None]
